FAERS Safety Report 5696782-1 (Version None)
Quarter: 2008Q2

REPORT INFORMATION
  Report Type: 
  Country: None (occurrence: None)
  Receive Date: 20080401
  Receipt Date: 20071010
  Transmission Date: 20081010
  Serious: Yes (Other)
  Sender: FDA-Public Use
  Company Number: 162876USA

PATIENT
  Age: 74 Year
  Sex: Female

DRUGS (2)
  1. TAMOXIFEN CITRATE [Suspect]
     Indication: BREAST CANCER
     Dates: start: 20030101, end: 20050101
  2. ANASTROZOLE [Suspect]
     Indication: BREAST CANCER
     Dates: start: 20050101

REACTIONS (1)
  - BREAST CANCER RECURRENT [None]
